FAERS Safety Report 7528096-9 (Version None)
Quarter: 2011Q2

REPORT INFORMATION
  Report Type: 
  Country: None (occurrence: None)
  Receive Date: 20110607
  Receipt Date: 20110525
  Transmission Date: 20111010
  Serious: Yes (Death, Hospitalization)
  Sender: FDA-Public Use
  Company Number: DE-ELI_LILLY_AND_COMPANY-DE201104002096

PATIENT
  Age: 74 Year
  Sex: Female
  Weight: 107 kg

DRUGS (23)
  1. VITAMIN D [Concomitant]
  2. CORTISONE ACETATE [Concomitant]
  3. PREDNISONE [Concomitant]
  4. SPIRONOLACTONE [Concomitant]
  5. EMBOLEX [Concomitant]
     Dosage: 3000 IU, UNK
  6. ASPIRIN [Concomitant]
  7. HYDROCHLOROTHIAZIDE [Concomitant]
     Dosage: 100 MG, UNK
     Dates: end: 20110315
  8. LORAZEPAM [Concomitant]
     Indication: RESTLESSNESS
     Dosage: 4 DF, PRN
  9. XIPAMID [Concomitant]
     Dosage: UNK
     Dates: start: 20110315
  10. SPIRIVA [Concomitant]
     Dosage: 18 UG, UNK
  11. TORSEMIDE [Concomitant]
     Dosage: 100 MG, UNK
  12. ZOPICLON [Concomitant]
     Indication: SLEEP DISORDER
  13. ERGOCALCIFEROL [Concomitant]
  14. RESTEX [Concomitant]
  15. SIMVASTATIN [Concomitant]
     Dosage: 40 MG, UNK
  16. CORTICOSTEROIDS [Concomitant]
     Indication: CHRONIC OBSTRUCTIVE PULMONARY DISEASE
  17. FORMOTEROL FUMARATE [Concomitant]
     Dosage: 12 UG, UNK
  18. BRICANYL [Concomitant]
     Dosage: 8 DF, PRN
  19. INNOHEP [Concomitant]
     Dosage: UNK
     Dates: start: 20110315
  20. FORTEO [Suspect]
     Indication: OSTEOPOROSIS
     Dosage: UNK, QD
     Route: 058
     Dates: start: 20100630
  21. CIRCADIN [Concomitant]
     Dosage: 2 MG, UNK
  22. ATACAND [Concomitant]
     Dosage: 8 MG, UNK
     Dates: start: 20110316
  23. PANTOPRAZOL [Concomitant]

REACTIONS (4)
  - CHRONIC OBSTRUCTIVE PULMONARY DISEASE [None]
  - RENAL FAILURE ACUTE [None]
  - MYOCARDIAL INFARCTION [None]
  - ORGAN FAILURE [None]
